FAERS Safety Report 7384587-5 (Version None)
Quarter: 2011Q1

REPORT INFORMATION
  Report Type: 
  Country: None (occurrence: None)
  Receive Date: 20110330
  Receipt Date: 20110322
  Transmission Date: 20110831
  Serious: Yes (Other)
  Sender: FDA-Public Use
  Company Number: US-AMGEN-USASP2011015515

PATIENT
  Age: 56 Year
  Sex: Female

DRUGS (1)
  1. ENBREL [Suspect]
     Indication: PUSTULAR PSORIASIS
     Dates: start: 20100301, end: 20110214

REACTIONS (10)
  - HYPERHIDROSIS [None]
  - NAUSEA [None]
  - PHARYNGITIS STREPTOCOCCAL [None]
  - PAIN IN JAW [None]
  - CHILLS [None]
  - PUSTULAR PSORIASIS [None]
  - PAIN IN EXTREMITY [None]
  - INFLUENZA [None]
  - CHEST PAIN [None]
  - PYREXIA [None]
